FAERS Safety Report 16617530 (Version 2)
Quarter: 2019Q3

REPORT INFORMATION
  Report Type: Spontaneous
  Country: ES (occurrence: ES)
  Receive Date: 20190723
  Receipt Date: 20190731
  Transmission Date: 20191004
  Serious: Yes (Disabling, Other)
  Sender: FDA-Public Use
  Company Number: ES-MYLANLABS-2019M1068112

PATIENT
  Age: 60 Year
  Sex: Male
  Weight: 64 kg

DRUGS (4)
  1. CARDYL [Suspect]
     Active Substance: ATORVASTATIN CALCIUM
     Indication: DYSLIPIDAEMIA
     Dosage: 0-0-1
     Route: 048
     Dates: start: 20031112, end: 20181106
  2. IMBRUVICA [Suspect]
     Active Substance: IBRUTINIB
     Indication: CHRONIC LYMPHOCYTIC LEUKAEMIA
     Dosage: 3 C?PSULAS (420MG) CADA 24 HORAS. (0-0-3-0). 3 COMPR. DE 140 MG JUNTOS (MERIENDA)
     Route: 048
     Dates: start: 20180413, end: 20190128
  3. ENTECAVIR. [Suspect]
     Active Substance: ENTECAVIR
     Indication: HEPATITIS B
     Dosage: ENTECAVIR-0.5: 0-1-0
     Route: 048
     Dates: start: 201101
  4. ADIRO [Concomitant]
     Active Substance: ASPIRIN
     Dosage: 1 CADA 24 HORAS
     Route: 048
     Dates: start: 20030527, end: 201804

REACTIONS (1)
  - Rhabdomyolysis [Not Recovered/Not Resolved]

NARRATIVE: CASE EVENT DATE: 201810
